FAERS Safety Report 19552195 (Version 3)
Quarter: 2022Q1

REPORT INFORMATION
  Report Type: Spontaneous
  Country: DE (occurrence: DE)
  Receive Date: 20210715
  Receipt Date: 20220225
  Transmission Date: 20220424
  Serious: Yes (Other)
  Sender: FDA-Public Use
  Company Number: DE-002147023-NVSC2021DE064918

PATIENT
  Sex: Female

DRUGS (6)
  1. ANASTROZOLE [Suspect]
     Active Substance: ANASTROZOLE
     Indication: Breast cancer metastatic
     Dosage: 1.5 MILLIGRAM, ONCE A DAY
     Route: 048
     Dates: start: 20200909
  2. KISQALI [Suspect]
     Active Substance: RIBOCICLIB
     Indication: Breast cancer metastatic
     Dosage: 600 MG, QD (21 DAYS INTAKE, 7 DAYS PAUSE)
     Route: 048
     Dates: start: 20200909, end: 20200922
  3. KISQALI [Suspect]
     Active Substance: RIBOCICLIB
     Dosage: 400 MILLIGRAM, ONCE A DAY (21 DAYS INTAKE, 7 DAYS PAUSE)
     Route: 048
     Dates: start: 20201104, end: 20201107
  4. BISOPROLOL [Concomitant]
     Active Substance: BISOPROLOL
     Indication: Product used for unknown indication
     Dosage: 5 MG (NOT REGURLARLY)
     Route: 065
  5. OLMESARTAN [Concomitant]
     Active Substance: OLMESARTAN
     Indication: Product used for unknown indication
     Dosage: 20 MILLIGRAM, ONCE A DAY
     Route: 065
  6. XARELTO [Concomitant]
     Active Substance: RIVAROXABAN
     Indication: Product used for unknown indication
     Dosage: 20 MILLIGRAM, ONCE A DAY
     Route: 065

REACTIONS (3)
  - Transaminases increased [Recovered/Resolved]
  - Neutropenia [Recovered/Resolved]
  - Nausea [Recovered/Resolved]

NARRATIVE: CASE EVENT DATE: 20200909
